FAERS Safety Report 5247146-6 (Version None)
Quarter: 2007Q1

REPORT INFORMATION
  Report Type: 
  Country: None (occurrence: None)
  Receive Date: 20070221
  Receipt Date: 20070208
  Transmission Date: 20070707
  Serious: Yes (Other)
  Sender: FDA-Public Use
  Company Number: MC200700118

PATIENT
  Sex: Female
  Weight: 97 kg

DRUGS (1)
  1. ANGIOMAX [Suspect]
     Dosage: SEE IMAGE
     Route: 040

REACTIONS (3)
  - ENDOTRACHEAL INTUBATION COMPLICATION [None]
  - HEPARIN-INDUCED THROMBOCYTOPENIA [None]
  - WOUND SECRETION [None]
